FAERS Safety Report 6091285-7 (Version None)
Quarter: 2009Q1

REPORT INFORMATION
  Report Type: 
  Country: None (occurrence: None)
  Receive Date: 20090225
  Receipt Date: 20090216
  Transmission Date: 20090719
  Serious: Yes (Other)
  Sender: FDA-Public Use
  Company Number: US-AMGEN-QUU333340

PATIENT
  Sex: Female

DRUGS (3)
  1. ENBREL [Suspect]
     Indication: PSORIATIC ARTHROPATHY
     Route: 058
     Dates: start: 20060901
  2. ENBREL [Suspect]
     Indication: PSORIASIS
  3. VITAMIN TAB [Concomitant]

REACTIONS (4)
  - DRUG HYPERSENSITIVITY [None]
  - STRESS [None]
  - THROAT TIGHTNESS [None]
  - URINARY TRACT INFECTION [None]
